FAERS Safety Report 19089444 (Version 1)
Quarter: 2021Q2

REPORT INFORMATION
  Report Type: Spontaneous
  Country: NL (occurrence: NL)
  Receive Date: 20210403
  Receipt Date: 20210403
  Transmission Date: 20210717
  Serious: Yes (Other)
  Sender: FDA-Public Use
  Company Number: NL-ACCORD-221757

PATIENT
  Sex: Female
  Weight: 84 kg

DRUGS (2)
  1. METHOTREXATE. [Suspect]
     Active Substance: METHOTREXATE
     Indication: DERMATITIS ATOPIC
     Dosage: 2.5 MG?1X PER WEEK 4 TABLETS
     Dates: start: 202011
  2. METHOTREXATE. [Suspect]
     Active Substance: METHOTREXATE
     Indication: DERMATITIS ATOPIC
     Dosage: 2.5 MG?1X PER WEEK 6 TABLETS

REACTIONS (1)
  - Arrhythmia [Recovered/Resolved]
